FAERS Safety Report 22099225 (Version 2)
Quarter: 2023Q2

REPORT INFORMATION
  Report Type: Spontaneous
  Country: US (occurrence: US)
  Receive Date: 20230315
  Receipt Date: 20230417
  Transmission Date: 20230721
  Serious: No
  Sender: FDA-Public Use
  Company Number: US-BAYER-2023A032023

PATIENT
  Age: 66 Year
  Sex: Female

DRUGS (1)
  1. CLIMARA [Suspect]
     Active Substance: ESTRADIOL
     Route: 062

REACTIONS (7)
  - Application site erythema [None]
  - Application site pruritus [Recovered/Resolved]
  - Skin disorder [None]
  - Product adhesion issue [None]
  - Expired product administered [None]
  - Application site rash [None]
  - Product physical issue [None]
